FAERS Safety Report 8989697 (Version 1)
Quarter: 2012Q4

REPORT INFORMATION
  Report Type: 
  Country: FR (occurrence: FR)
  Receive Date: 20121227
  Receipt Date: 20121227
  Transmission Date: 20130627
  Serious: Yes (Hospitalization)
  Sender: FDA-Public Use
  Company Number: FR-BRISTOL-MYERS SQUIBB COMPANY-17230467

PATIENT
  Age: 83 Year
  Sex: Male

DRUGS (1)
  1. COUMADIN TABS 2 MG [Suspect]
     Indication: ATRIAL FIBRILLATION
     Dosage: Inter 24Sep12. Restarted: 28Sep2012 with Coumadine at 0.25 tablet on odd days

REACTIONS (5)
  - Gastrointestinal haemorrhage [Recovered/Resolved]
  - Anaemia [Not Recovered/Not Resolved]
  - Renal failure [Unknown]
  - International normalised ratio increased [Recovered/Resolved]
  - Inflammation [Unknown]
